FAERS Safety Report 12919725 (Version 1)
Quarter: 2016Q4

REPORT INFORMATION
  Report Type: Spontaneous
  Country: FR (occurrence: FR)
  Receive Date: 20161107
  Receipt Date: 20161107
  Transmission Date: 20170207
  Serious: Yes (Hospitalization, Other)
  Sender: FDA-Public Use
  Company Number: FR-TAKEDA-2016TUS019851

PATIENT
  Age: 42 Year
  Sex: Female

DRUGS (4)
  1. COLCHICINE. [Suspect]
     Active Substance: COLCHICINE
     Indication: PRODUCT USED FOR UNKNOWN INDICATION
     Dosage: UNK
     Route: 065
  2. TRANXENE T-TAB [Concomitant]
     Active Substance: CLORAZEPATE DIPOTASSIUM
     Dosage: UNK
  3. PROPOFAN                           /00765201/ [Concomitant]
     Dosage: UNK
  4. GLIFANAN                           /00026401/ [Concomitant]
     Dosage: UNK

REACTIONS (3)
  - Suicidal ideation [Unknown]
  - Toxicity to various agents [Unknown]
  - Intentional overdose [Unknown]
